FAERS Safety Report 20709603 (Version 1)
Quarter: 2022Q2

REPORT INFORMATION
  Report Type: Spontaneous
  Country: US (occurrence: None)
  Receive Date: 20220414
  Receipt Date: 20220414
  Transmission Date: 20220720
  Serious: Yes (Hospitalization)
  Sender: FDA-Public Use
  Company Number: None

PATIENT
  Sex: Female
  Weight: 67.4 kg

DRUGS (4)
  1. DACARBAZINE [Suspect]
     Active Substance: DACARBAZINE
     Dates: end: 20220330
  2. DOXORUBICIN HYDROCHLORIDE [Suspect]
     Active Substance: DOXORUBICIN HYDROCHLORIDE
     Dates: end: 20220330
  3. BRENTUXIMAB VEDOTIN [Suspect]
     Active Substance: BRENTUXIMAB VEDOTIN
     Dates: end: 20220330
  4. VINBLASTINE SULFATE [Suspect]
     Active Substance: VINBLASTINE SULFATE
     Dates: end: 20220330

REACTIONS (8)
  - Asthenia [None]
  - Blood pressure decreased [None]
  - Heart rate increased [None]
  - Fatigue [None]
  - Syncope [None]
  - Nausea [None]
  - Vomiting [None]
  - Diarrhoea [None]

NARRATIVE: CASE EVENT DATE: 20220404
